FAERS Safety Report 25253985 (Version 1)
Quarter: 2025Q2

REPORT INFORMATION
  Report Type: Spontaneous
  Country: US (occurrence: US)
  Receive Date: 20250430
  Receipt Date: 20250430
  Transmission Date: 20250717
  Serious: No
  Sender: BRISTOL-MYERS SQUIBB COMPANY
  Company Number: US-BRISTOL-MYERS SQUIBB COMPANY-2025-059254

PATIENT
  Age: 64 Year
  Sex: Male
  Weight: 108.86 kg

DRUGS (1)
  1. ORENCIA [Suspect]
     Active Substance: ABATACEPT
     Indication: Rheumatoid arthritis
     Route: 058
     Dates: start: 202502

REACTIONS (4)
  - Device delivery system issue [Unknown]
  - Device difficult to use [Unknown]
  - Hypoacusis [Unknown]
  - Scratch [Unknown]

NARRATIVE: CASE EVENT DATE: 20250420
